FAERS Safety Report 5879012-7 (Version None)
Quarter: 2008Q3

REPORT INFORMATION
  Report Type: 
  Country: None (occurrence: None)
  Receive Date: 20080912
  Receipt Date: 20080829
  Transmission Date: 20090109
  Serious: Yes (Hospitalization, Other)
  Sender: FDA-Public Use
  Company Number: US-ELI_LILLY_AND_COMPANY-US200706002570

PATIENT
  Sex: Female
  Weight: 74.376 kg

DRUGS (20)
  1. BYETTA [Suspect]
     Indication: TYPE 2 DIABETES MELLITUS
     Dosage: 5 UG, 2/D
     Route: 058
     Dates: start: 20060101, end: 20060101
  2. BYETTA [Suspect]
     Dosage: 10 UG, 2/D
     Route: 058
     Dates: start: 20060101
  3. BYETTA [Suspect]
     Dosage: 10 UG, 2/D
     Route: 058
     Dates: start: 20060101, end: 20060101
  4. ASPIRIN [Concomitant]
     Dosage: 81 MG, DAILY (1/D)
     Route: 048
  5. METFORMIN [Concomitant]
     Indication: TYPE 2 DIABETES MELLITUS
     Dosage: 850 MG, 2/D
     Route: 048
  6. GLYBURIDE [Concomitant]
     Dosage: UNK, UNKNOWN
  7. AVANDIA [Concomitant]
     Dosage: UNK, UNKNOWN
  8. AVALIDE [Concomitant]
     Indication: BLOOD PRESSURE INCREASED
     Dosage: UNK MG, DAILY (1/D)
  9. NORVASC [Concomitant]
     Indication: BLOOD PRESSURE INCREASED
     Dosage: 5 MG, DAILY (1/D)
  10. LIPITOR [Concomitant]
     Indication: BLOOD CHOLESTEROL INCREASED
     Dosage: 80 MG, DAILY (1/D)
  11. ATENOLOL [Concomitant]
     Indication: BLOOD PRESSURE INCREASED
     Dosage: 25 MG, DAILY (1/D)
     Route: 048
  12. HUMALOG [Concomitant]
     Indication: TYPE 2 DIABETES MELLITUS
     Dosage: 5 U, EACH MORNING
     Route: 058
  13. HUMALOG [Concomitant]
     Dosage: 5 U, DAILY (1/D)
     Route: 058
  14. HUMALOG [Concomitant]
     Dosage: 8 U, EACH EVENING
     Route: 058
  15. LANTUS [Concomitant]
     Indication: TYPE 2 DIABETES MELLITUS
     Dosage: 34 U, DAILY (1/D)
     Route: 058
  16. FOLIC ACID [Concomitant]
     Dosage: UNK, UNKNOWN
  17. CALCIUM [Concomitant]
     Dosage: UNK, UNKNOWN
  18. MULTI-VITAMINS [Concomitant]
     Dosage: UNK, UNKNOWN
  19. TRAZODONE HCL [Concomitant]
     Indication: SLEEP DISORDER
     Dosage: 50 MG, DAILY (1/D)
     Route: 048
  20. IRON [Concomitant]

REACTIONS (8)
  - ASTHENIA [None]
  - BACK PAIN [None]
  - BREAST CANCER IN SITU [None]
  - CHILLS [None]
  - DEVICE MISUSE [None]
  - FATIGUE [None]
  - HAEMOGLOBIN DECREASED [None]
  - PHARMACEUTICAL PRODUCT COMPLAINT [None]
